FAERS Safety Report 7719501-3 (Version None)
Quarter: 2011Q3

REPORT INFORMATION
  Report Type: 
  Country: None (occurrence: None)
  Receive Date: 20110830
  Receipt Date: 20110819
  Transmission Date: 20111222
  Serious: Yes (Hospitalization)
  Sender: FDA-Public Use
  Company Number: US-ELI_LILLY_AND_COMPANY-US201108006529

PATIENT
  Sex: Male

DRUGS (5)
  1. HUMALOG MIX 75/25 [Suspect]
     Indication: DIABETES MELLITUS
     Dosage: UNK UNK, QID
  2. HUMALOG MIX 75/25 [Suspect]
     Dosage: UNK UNK, PRN
  3. HUMALOG MIX 75/25 [Suspect]
     Dosage: UNK UNK, PRN
  4. HUMALOG MIX 75/25 [Suspect]
     Dosage: UNK UNK, QID
  5. LANTUS [Concomitant]
     Dosage: 30 U, EACH EVENING

REACTIONS (2)
  - HOSPITALISATION [None]
  - NASOPHARYNGITIS [None]
